FAERS Safety Report 6368360-2 (Version None)
Quarter: 2009Q3

REPORT INFORMATION
  Report Type: 
  Country: None (occurrence: None)
  Receive Date: 20090922
  Receipt Date: 20090914
  Transmission Date: 20100115
  Serious: Yes (Hospitalization)
  Sender: FDA-Public Use
  Company Number: US-ASTRAZENECA-2009SE12966

PATIENT
  Age: 63 Year
  Sex: Male
  Weight: 89.8 kg

DRUGS (10)
  1. CRESTOR [Suspect]
     Indication: BLOOD CHOLESTEROL INCREASED
     Route: 048
     Dates: start: 20070101
  2. PLAVIX [Concomitant]
  3. METFORMIN HCL [Concomitant]
  4. GLYBURIDE [Concomitant]
     Indication: DIABETES MELLITUS
  5. ATENOLOL [Concomitant]
  6. ISOSORBIDE ER [Concomitant]
  7. ASPIRIN [Concomitant]
  8. OMIPROZOLE [Concomitant]
     Indication: REFLUX GASTRITIS
  9. NITRO PATCHES [Concomitant]
     Route: 061
  10. NITROSTAT [Concomitant]
     Dosage: PRN

REACTIONS (2)
  - STENT PLACEMENT [None]
  - VASCULAR GRAFT [None]
